FAERS Safety Report 5003377-1 (Version None)
Quarter: 2006Q2

REPORT INFORMATION
  Report Type: 
  Country: None (occurrence: None)
  Receive Date: 20060511
  Receipt Date: 20060421
  Transmission Date: 20061013
  Serious: Yes (Other)
  Sender: FDA-Public Use
  Company Number: 2006059890

PATIENT
  Age: 30 Year
  Sex: Female
  Weight: 102 kg

DRUGS (1)
  1. DEPO-PROVERA [Suspect]
     Indication: CONTRACEPTION
     Dosage: 150 MG (150 MG, MOST RECENT INJECTION), INTRAMUSCULAR
     Route: 030

REACTIONS (2)
  - DYSPNOEA [None]
  - URTICARIA [None]
